FAERS Safety Report 7538828-1 (Version None)
Quarter: 2011Q2

REPORT INFORMATION
  Report Type: 
  Country: None (occurrence: None)
  Receive Date: 20110610
  Receipt Date: 20110509
  Transmission Date: 20111010
  Serious: Yes (Other)
  Sender: FDA-Public Use
  Company Number: US-BAYER-2011-013145

PATIENT
  Sex: Female
  Weight: 55 kg

DRUGS (6)
  1. NSAID'S [Concomitant]
  2. YAZ [Suspect]
     Indication: PRODUCT USED FOR UNKNOWN INDICATION
     Dosage: UNK
     Dates: start: 20080501, end: 20090929
  3. ANTIBIOTICS [Concomitant]
  4. TIMOPTIC [Concomitant]
  5. XALATAN [Concomitant]
  6. ASCORBIC ACID [Concomitant]

REACTIONS (3)
  - ABDOMINAL PAIN [None]
  - CHOLELITHIASIS [None]
  - GALLBLADDER DISORDER [None]
